FAERS Safety Report 4296094-7 (Version None)
Quarter: 2004Q1

REPORT INFORMATION
  Report Type: 
  Country: None (occurrence: None)
  Receive Date: 20040213
  Receipt Date: 20040213
  Transmission Date: 20041129
  Serious: No
  Sender: FDA-Public Use
  Company Number: None

PATIENT
  Sex: Female
  Weight: 50.8029 kg

DRUGS (2)
  1. ZICAM NASAL SPRAY OTC [Suspect]
     Indication: NASOPHARYNGITIS
     Dosage: 1 SPRAY EVERY 4 HO NASAL
     Route: 045
     Dates: start: 20040131, end: 20040201
  2. ZICAM NASAL SPRAY OTC [Suspect]
     Indication: PROPHYLAXIS
     Dosage: 1 SPRAY EVERY 4 HO NASAL
     Route: 045
     Dates: start: 20040131, end: 20040201

REACTIONS (4)
  - APPLICATION SITE BURNING [None]
  - NASAL DISORDER [None]
  - PAIN [None]
  - PAROSMIA [None]
